FAERS Safety Report 9467775 (Version 1)
Quarter: 2013Q3

REPORT INFORMATION
  Report Type: Spontaneous
  Country: BR (occurrence: BR)
  Receive Date: 20130821
  Receipt Date: 20130821
  Transmission Date: 20140515
  Serious: Yes (Death)
  Sender: FDA-Public Use
  Company Number: BR-JNJFOC-20130808149

PATIENT
  Sex: Male

DRUGS (3)
  1. TYLEX [Suspect]
     Indication: PAIN
     Route: 065
  2. ^CANCER MEDICATIONS^ (NOS) [Concomitant]
     Indication: PROSTATE CANCER
     Route: 065
  3. DOXAZOSIN [Concomitant]
     Indication: PRODUCT USED FOR UNKNOWN INDICATION
     Route: 065

REACTIONS (2)
  - Death [Fatal]
  - Metastasis [Unknown]
